FAERS Safety Report 10195986 (Version 4)
Quarter: 2014Q4

REPORT INFORMATION
  Report Type: Spontaneous
  Country: US (occurrence: US)
  Receive Date: 20140527
  Receipt Date: 20141031
  Transmission Date: 20150528
  Serious: Yes (Other)
  Sender: FDA-Public Use
  Company Number: PHEH2014US010401

PATIENT
  Sex: Female

DRUGS (12)
  1. TOPROL XL [Concomitant]
     Active Substance: METOPROLOL SUCCINATE
     Indication: PRODUCT USED FOR UNKNOWN INDICATION
     Dosage: 25 MG, UNK
     Route: 065
     Dates: start: 20110515
  2. DIOVAN HCT [Suspect]
     Active Substance: HYDROCHLOROTHIAZIDE\VALSARTAN
     Indication: HYPERTENSION
     Dosage: 1 DF, QD (VALSARTAN 160 MG, HYDROCHLOROTHIAZIDE 12.5 MG)
     Route: 048
     Dates: start: 200803, end: 20110615
  3. HYDROCHLOROTHIAZIDE. [Suspect]
     Active Substance: HYDROCHLOROTHIAZIDE
     Indication: HYPERTENSION
     Dosage: 0.5 DF, A DAY (25 MG) HALF PILL
     Route: 048
     Dates: start: 20070904, end: 200803
  4. DIOVAN HCT [Suspect]
     Active Substance: HYDROCHLOROTHIAZIDE\VALSARTAN
     Dosage: 0.5 DF (VALSARTAN 160 MG / HYDROCHLOROTHIAZIDE 12.5 MG) (CUTTING THE TABLET IN HALF), UNK
     Route: 048
     Dates: start: 20110615, end: 20140520
  5. JANUVIA [Concomitant]
     Active Substance: SITAGLIPTIN PHOSPHATE
     Indication: IRRITABLE BOWEL SYNDROME
     Dosage: 1 DF, PER DAY
     Route: 065
     Dates: start: 20110801
  6. DIOVAN [Suspect]
     Active Substance: VALSARTAN
     Indication: HYPERTENSION
     Dosage: 80 MG, QD
     Route: 048
     Dates: start: 20070122, end: 20070129
  7. DIOVAN [Suspect]
     Active Substance: VALSARTAN
     Dosage: 160 MG, QD
     Route: 048
     Dates: start: 20070330, end: 200803
  8. ACTOS [Concomitant]
     Active Substance: PIOGLITAZONE HYDROCHLORIDE
     Indication: PRODUCT USED FOR UNKNOWN INDICATION
     Dosage: UNK UKN, UNK
     Route: 065
  9. DIOVAN [Suspect]
     Active Substance: VALSARTAN
     Dosage: 0.5 DF (CUT THE TABLET OF 160 MG IN HALF), UNK
     Route: 048
  10. LOPRESSOR [Suspect]
     Active Substance: METOPROLOL TARTRATE
     Indication: ANGIOGRAM
     Dosage: 50 MG, UNK BEFORE STARTING CT
     Route: 065
  11. DIOVAN [Suspect]
     Active Substance: VALSARTAN
     Dosage: 0.5 DF (HALF TABLET OF 160 MG), UNK
     Route: 048
     Dates: start: 20070122
  12. HYDROCHLOROTHIAZIDE. [Suspect]
     Active Substance: HYDROCHLOROTHIAZIDE
     Indication: JOINT SWELLING

REACTIONS (19)
  - Lichen planus [Unknown]
  - Hypertension [Unknown]
  - Vertigo [Unknown]
  - Gait disturbance [Unknown]
  - Dry mouth [Unknown]
  - Nephrolithiasis [Unknown]
  - Dry eye [Unknown]
  - Diarrhoea [Unknown]
  - Blood glucose abnormal [Unknown]
  - Urine output increased [Unknown]
  - Feeling drunk [Unknown]
  - Wrong technique in drug usage process [Unknown]
  - Dizziness [Unknown]
  - Heart rate abnormal [Unknown]
  - Pollakiuria [Unknown]
  - Blood potassium decreased [Unknown]
  - Confusional state [Unknown]
  - Muscle spasms [Unknown]
  - Weight decreased [Unknown]
